FAERS Safety Report 12243409 (Version 4)
Quarter: 2016Q3

REPORT INFORMATION
  Report Type: Spontaneous
  Country: US (occurrence: US)
  Receive Date: 20160406
  Receipt Date: 20160829
  Transmission Date: 20161109
  Serious: Yes (Other)
  Sender: FDA-Public Use
  Company Number: US-009507513-1604USA001020

PATIENT
  Sex: Male

DRUGS (3)
  1. PROPRANOLOL [Concomitant]
     Active Substance: PROPRANOLOL\PROPRANOLOL HYDROCHLORIDE
     Indication: HYPERTENSION
     Dosage: UNK UNK, UNKNOWN
     Route: 065
     Dates: start: 1974
  2. PROPECIA [Suspect]
     Active Substance: FINASTERIDE
     Indication: ANDROGENETIC ALOPECIA
     Dosage: 1 MG, QD
     Route: 048
     Dates: start: 2006
  3. PROSCAR [Suspect]
     Active Substance: FINASTERIDE
     Indication: ALOPECIA
     Dosage: TABLET CUT INTO FOURTHS
     Route: 048
     Dates: start: 2006, end: 201104

REACTIONS (25)
  - Anxiety [Not Recovered/Not Resolved]
  - Penis injury [Not Recovered/Not Resolved]
  - Arthritis [Unknown]
  - Loss of libido [Recovering/Resolving]
  - Wrong technique in product usage process [Unknown]
  - Erectile dysfunction [Not Recovered/Not Resolved]
  - Sexual dysfunction [Not Recovered/Not Resolved]
  - Pelvic fracture [Unknown]
  - Cholecystectomy [Unknown]
  - Painful ejaculation [Unknown]
  - Hormone level abnormal [Not Recovered/Not Resolved]
  - Prostate cancer metastatic [Unknown]
  - Osteopenia [Unknown]
  - Groin pain [Recovering/Resolving]
  - Depression [Not Recovered/Not Resolved]
  - Testicular atrophy [Not Recovered/Not Resolved]
  - Drug administration error [Unknown]
  - Pubis fracture [Unknown]
  - Pubis fracture [Recovering/Resolving]
  - Osteoporosis [Unknown]
  - Prostate cancer [Unknown]
  - Rib fracture [Unknown]
  - Brain injury [Not Recovered/Not Resolved]
  - Endocrine disorder [Not Recovered/Not Resolved]
  - Back pain [Not Recovered/Not Resolved]

NARRATIVE: CASE EVENT DATE: 2006
